FAERS Safety Report 5806017-4 (Version None)
Quarter: 2008Q3

REPORT INFORMATION
  Report Type: 
  Country: None (occurrence: None)
  Receive Date: 20080710
  Receipt Date: 20080707
  Transmission Date: 20090109
  Serious: Yes (Hospitalization)
  Sender: FDA-Public Use
  Company Number: B0528593A

PATIENT
  Sex: Male
  Weight: 68 kg

DRUGS (1)
  1. ARIXTRA [Suspect]
     Dosage: 1.5MG PER DAY
     Route: 058

REACTIONS (1)
  - POST PROCEDURAL INFECTION [None]
